FAERS Safety Report 22261678 (Version 1)
Quarter: 2023Q2

REPORT INFORMATION
  Report Type: Spontaneous
  Country: GB (occurrence: GB)
  Receive Date: 20230427
  Receipt Date: 20230427
  Transmission Date: 20230722
  Serious: Yes (Death, Hospitalization)
  Sender: FDA-Public Use
  Company Number: GB-STRIDES ARCOLAB LIMITED-2023SP006130

PATIENT
  Age: 55 Year
  Sex: Male

DRUGS (19)
  1. METHOTREXATE [Suspect]
     Active Substance: METHOTREXATE
     Indication: Diffuse large B-cell lymphoma stage IV
     Dosage: UNK, HIGH DOSE, 3 CYCLES
     Route: 065
  2. DEXAMETHASONE [Suspect]
     Active Substance: DEXAMETHASONE
     Indication: Diffuse large B-cell lymphoma stage IV
     Dosage: UNK, 2 CYCLES
     Route: 065
  3. DEXAMETHASONE [Suspect]
     Active Substance: DEXAMETHASONE
     Indication: Cytokine release syndrome
     Dosage: UNK (FOR CYTOKINE RELEASE SYNDROME)
     Route: 065
  4. DEXAMETHASONE [Suspect]
     Active Substance: DEXAMETHASONE
     Indication: Immune effector cell-associated neurotoxicity syndrome
     Dosage: UNK (FOR ICANS)
     Route: 065
  5. DEXAMETHASONE [Suspect]
     Active Substance: DEXAMETHASONE
     Indication: Hypotension
     Dosage: UNK (WEANED OFF)
     Route: 065
  6. DEXAMETHASONE [Suspect]
     Active Substance: DEXAMETHASONE
     Dosage: UNK (RESTARTED FOR ICANS)
     Route: 065
  7. PREDNISOLONE [Suspect]
     Active Substance: PREDNISOLONE
     Indication: Diffuse large B-cell lymphoma stage IV
     Dosage: UNK, 6 CYCLES
     Route: 065
  8. DOXORUBICIN [Suspect]
     Active Substance: DOXORUBICIN
     Indication: Diffuse large B-cell lymphoma stage IV
     Dosage: UNK, 6 CYCLES
     Route: 065
  9. CISPLATIN [Suspect]
     Active Substance: CISPLATIN
     Indication: Diffuse large B-cell lymphoma stage IV
     Dosage: UNK, 2 CYCLES
     Route: 065
  10. YESCARTA [Suspect]
     Active Substance: AXICABTAGENE CILOLEUCEL
     Indication: Diffuse large B-cell lymphoma stage IV
     Dosage: UNK (CHIMERIC ANTIGEN RECEPTOR T CELLS (CART) THERAPY)
     Route: 065
  11. RITUXIMAB [Suspect]
     Active Substance: RITUXIMAB
     Indication: Diffuse large B-cell lymphoma stage IV
     Dosage: UNK, 6 CYCLES
     Route: 065
  12. RITUXIMAB [Suspect]
     Active Substance: RITUXIMAB
     Dosage: UNK, 2 CYCLES
     Route: 065
  13. CYCLOPHOSPHAMIDE [Suspect]
     Active Substance: CYCLOPHOSPHAMIDE
     Indication: Diffuse large B-cell lymphoma stage IV
     Dosage: UNK, 6 CYCLES
     Route: 065
  14. CYCLOPHOSPHAMIDE [Suspect]
     Active Substance: CYCLOPHOSPHAMIDE
     Dosage: UNK (FLUDARABINE AND CYCLOPHOSPHAMIDE)
     Route: 065
  15. VINCRISTINE [Suspect]
     Active Substance: VINCRISTINE
     Indication: Diffuse large B-cell lymphoma stage IV
     Dosage: UNK, 6 CYCLES
     Route: 065
  16. CYTARABINE [Suspect]
     Active Substance: CYTARABINE
     Indication: Diffuse large B-cell lymphoma stage IV
     Dosage: UNK, 2 CYCLES
     Route: 065
  17. FLUDARABINE [Suspect]
     Active Substance: FLUDARABINE PHOSPHATE
     Indication: Diffuse large B-cell lymphoma stage IV
     Dosage: UNK
     Route: 065
  18. TOCILIZUMAB [Suspect]
     Active Substance: TOCILIZUMAB
     Indication: Cytokine release syndrome
     Dosage: UNK
     Route: 065
  19. TOCILIZUMAB [Suspect]
     Active Substance: TOCILIZUMAB
     Indication: Hypotension

REACTIONS (11)
  - Drug ineffective [Fatal]
  - Disease progression [Fatal]
  - Diffuse large B-cell lymphoma stage IV [Fatal]
  - Human herpesvirus 6 encephalitis [Recovered/Resolved]
  - Escherichia sepsis [Recovered/Resolved]
  - Pneumonia [Recovered/Resolved]
  - Rhinovirus infection [Recovered/Resolved]
  - BK virus infection [Recovered/Resolved]
  - Cystitis haemorrhagic [Recovered/Resolved]
  - Therapy partial responder [Unknown]
  - Off label use [Unknown]
